FAERS Safety Report 5376770-5 (Version None)
Quarter: 2007Q2

REPORT INFORMATION
  Report Type: 
  Country: None (occurrence: None)
  Receive Date: 20070530
  Receipt Date: 20070214
  Transmission Date: 20071010
  Serious: No
  Sender: FDA-Public Use
  Company Number: 2007PV030085

PATIENT
  Age: 40 Year
  Sex: Female

DRUGS (2)
  1. BYETTA [Suspect]
     Indication: DIABETES MELLITUS NON-INSULIN-DEPENDENT
     Dosage: 5 MCB; BID; SC; 5 MCG; BID; SC
     Route: 058
     Dates: start: 20070113, end: 20070116
  2. BYETTA [Suspect]
     Indication: DIABETES MELLITUS NON-INSULIN-DEPENDENT
     Dosage: 5 MCB; BID; SC; 5 MCG; BID; SC
     Route: 058
     Dates: start: 20070119, end: 20070122

REACTIONS (2)
  - INJECTION SITE RASH [None]
  - STRESS AT WORK [None]
